FAERS Safety Report 4827428-X (Version None)
Quarter: 2005Q4

REPORT INFORMATION
  Report Type: 
  Country: None (occurrence: None)
  Receive Date: 20051110
  Receipt Date: 20051013
  Transmission Date: 20060501
  Serious: Yes (Other)
  Sender: FDA-Public Use
  Company Number: 2005BH002317

PATIENT
  Sex: Female

DRUGS (2)
  1. GENTAMICIN [Suspect]
     Indication: PSEUDOMONAS INFECTION
  2. CEFTAZIDIME SODIUM [Suspect]
     Indication: PSEUDOMONAS INFECTION

REACTIONS (5)
  - DRUG HYPERSENSITIVITY [None]
  - NEPHRITIS INTERSTITIAL [None]
  - NEPHROPATHY TOXIC [None]
  - RENAL IMPAIRMENT [None]
  - RENAL TUBULAR NECROSIS [None]
